FAERS Safety Report 20391122 (Version 1)
Quarter: 2022Q1

REPORT INFORMATION
  Report Type: Spontaneous
  Country: US (occurrence: None)
  Receive Date: 20220127
  Receipt Date: 20220127
  Transmission Date: 20220424
  Serious: Yes (Hospitalization)
  Sender: FDA-Public Use
  Company Number: None

PATIENT
  Age: 50 Year
  Sex: Female

DRUGS (1)
  1. HUMIRA [Suspect]
     Active Substance: ADALIMUMAB
     Indication: Psoriasis
     Dosage: OTHER FREQUENCY : BI-WEEKLY;?
     Route: 058
     Dates: start: 20200306

REACTIONS (2)
  - Gastric disorder [None]
  - Drainage [None]

NARRATIVE: CASE EVENT DATE: 20220127
